FAERS Safety Report 4361985-5 (Version None)
Quarter: 2004Q2

REPORT INFORMATION
  Report Type: 
  Country: None (occurrence: None)
  Receive Date: 20040521
  Receipt Date: 20040211
  Transmission Date: 20050107
  Serious: No
  Sender: FDA-Public Use
  Company Number: US-GLAXOSMITHKLINE-A0497807A

PATIENT
  Age: 56 Year
  Sex: Female

DRUGS (11)
  1. WELLBUTRIN XL [Suspect]
     Indication: DEPRESSION
     Dosage: 150MG PER DAY
     Route: 048
     Dates: start: 20030901
  2. BUSPAR [Concomitant]
  3. ESKALITH CR [Concomitant]
  4. METFORMIN HCL [Concomitant]
  5. MULTIVITAMIN [Concomitant]
  6. CALCIUM [Concomitant]
  7. PREMARIN [Concomitant]
  8. UNSPECIFIED MEDICATION [Concomitant]
  9. PRILOSEC [Concomitant]
  10. LIPITOR [Concomitant]
  11. KLONOPIN [Concomitant]

REACTIONS (4)
  - ANXIETY [None]
  - DYSGEUSIA [None]
  - STOMACH DISCOMFORT [None]
  - TINNITUS [None]
